FAERS Safety Report 13656590 (Version 3)
Quarter: 2017Q2

REPORT INFORMATION
  Report Type: Spontaneous
  Country: JP (occurrence: JP)
  Receive Date: 20170615
  Receipt Date: 20170629
  Transmission Date: 20170830
  Serious: Yes (Other)
  Sender: FDA-Public Use
  Company Number: JP-PFIZER INC-2017182161

PATIENT
  Sex: Female

DRUGS (6)
  1. LYRICA [Suspect]
     Active Substance: PREGABALIN
     Dosage: 75 MG, 1X/DAY(AT BEDTIME)
     Route: 048
     Dates: start: 20170307
  2. DEPAS [Concomitant]
     Active Substance: ETIZOLAM
     Indication: ASTHENOPIA
  3. LYRICA [Suspect]
     Active Substance: PREGABALIN
     Indication: EPICONDYLITIS
     Dosage: 50 MG, 1X/DAY (AT BEDTIME)
     Route: 048
     Dates: start: 20170425, end: 20170425
  4. LYRICA [Suspect]
     Active Substance: PREGABALIN
     Dosage: 75 MG, ALTERNATE DAY (AT BEDTIME)
     Route: 048
  5. DEPAS [Concomitant]
     Active Substance: ETIZOLAM
     Indication: MUSCULOSKELETAL STIFFNESS
  6. LENDORMIN [Concomitant]
     Active Substance: BROTIZOLAM
     Dosage: UNK

REACTIONS (8)
  - Hallucination, auditory [Unknown]
  - Musculoskeletal pain [Unknown]
  - Amylase increased [Unknown]
  - Deafness [Unknown]
  - Hyperacusis [Not Recovered/Not Resolved]
  - Product use issue [Unknown]
  - Neck pain [Unknown]
  - Drug ineffective for unapproved indication [Unknown]

NARRATIVE: CASE EVENT DATE: 201703
